FAERS Safety Report 8296940-6 (Version None)
Quarter: 2012Q2

REPORT INFORMATION
  Report Type: 
  Country: None (occurrence: None)
  Receive Date: 20120419
  Receipt Date: 20120410
  Transmission Date: 20120825
  Serious: No
  Sender: FDA-Public Use
  Company Number: US-BIOGENIDEC-2012BI012725

PATIENT
  Age: 58 Year
  Sex: Female

DRUGS (2)
  1. SEIZURE MEDICATION [Concomitant]
     Indication: CONVULSION
  2. TYSABRI [Suspect]
     Indication: MULTIPLE SCLEROSIS
     Route: 042
     Dates: start: 20110506

REACTIONS (6)
  - COUGH [None]
  - PYREXIA [None]
  - CHEST PAIN [None]
  - OEDEMA PERIPHERAL [None]
  - DYSPNOEA [None]
  - SLUGGISHNESS [None]
